FAERS Safety Report 16813948 (Version 3)
Quarter: 2020Q3

REPORT INFORMATION
  Report Type: Spontaneous
  Country: US (occurrence: US)
  Receive Date: 20190917
  Receipt Date: 20200817
  Transmission Date: 20201102
  Serious: Yes (Other)
  Sender: FDA-Public Use
  Company Number: US-GILEAD-2019-0428032

PATIENT
  Sex: Male

DRUGS (1)
  1. TRUVADA [Suspect]
     Active Substance: EMTRICITABINE\TENOFOVIR DISOPROXIL FUMARATE
     Indication: HIV INFECTION
     Dosage: UNK
     Route: 048
     Dates: start: 2004, end: 2015

REACTIONS (16)
  - Economic problem [Unknown]
  - Back pain [Not Recovered/Not Resolved]
  - Gait disturbance [Not Recovered/Not Resolved]
  - Pain [Unknown]
  - Fatigue [Not Recovered/Not Resolved]
  - Anxiety [Unknown]
  - Bone loss [Unknown]
  - Emotional distress [Unknown]
  - Pollakiuria [Not Recovered/Not Resolved]
  - Tooth loss [Not Recovered/Not Resolved]
  - Anhedonia [Unknown]
  - Renal pain [Not Recovered/Not Resolved]
  - Visual impairment [Not Recovered/Not Resolved]
  - Osteonecrosis [Unknown]
  - Arthralgia [Not Recovered/Not Resolved]
  - Bone density decreased [Unknown]
